FAERS Safety Report 9908496 (Version 1)
Quarter: 2014Q1

REPORT INFORMATION
  Report Type: Report from Study
  Country: US (occurrence: US)
  Receive Date: 20140219
  Receipt Date: 20140219
  Transmission Date: 20141002
  Serious: Yes (Death)
  Sender: FDA-Public Use
  Company Number: US-ROCHE-1328573

PATIENT
  Sex: Female
  Weight: 69.01 kg

DRUGS (3)
  1. AVASTIN [Suspect]
     Indication: BREAST CANCER METASTATIC
     Route: 042
     Dates: start: 20101206
  2. AVASTIN [Suspect]
     Indication: METASTASES TO BONE
  3. NAVELBINE [Concomitant]
     Route: 042

REACTIONS (3)
  - Death [Fatal]
  - Anaemia [Unknown]
  - Neutropenia [Unknown]
